FAERS Safety Report 23465792 (Version 3)
Quarter: 2024Q2

REPORT INFORMATION
  Report Type: Spontaneous
  Country: US (occurrence: US)
  Receive Date: 20240201
  Receipt Date: 20240424
  Transmission Date: 20240716
  Serious: Yes (Other)
  Sender: FDA-Public Use
  Company Number: US-PFIZER INC-2021887636

PATIENT
  Age: 75 Year
  Sex: Male
  Weight: 99.773 kg

DRUGS (2)
  1. BOSULIF [Suspect]
     Active Substance: BOSUTINIB MONOHYDRATE
     Indication: Chronic myeloid leukaemia
     Dosage: FOUR 100 MG TABLETS DAILY
     Route: 048
     Dates: end: 20231212
  2. BOSULIF [Suspect]
     Active Substance: BOSUTINIB MONOHYDRATE
     Dosage: 400 MG 1 DAILY
     Route: 048

REACTIONS (4)
  - Cerebrovascular accident [Unknown]
  - Immobile [Unknown]
  - Dysphagia [Unknown]
  - Product dose omission issue [Unknown]
